FAERS Safety Report 5161685-8 (Version None)
Quarter: 2006Q4

REPORT INFORMATION
  Report Type: 
  Country: None (occurrence: None)
  Receive Date: 20061130
  Receipt Date: 20060612
  Transmission Date: 20070319
  Serious: No
  Sender: FDA-Public Use
  Company Number: US-BRISTOL-MYERS SQUIBB COMPANY-13408869

PATIENT
  Sex: Female

DRUGS (2)
  1. METFORMIN HCL [Suspect]
  2. LISINOPRIL [Concomitant]

REACTIONS (2)
  - DRUG DISPENSING ERROR [None]
  - NO ADVERSE EFFECT [None]
